FAERS Safety Report 20008752 (Version 1)
Quarter: 2021Q4

REPORT INFORMATION
  Report Type: Spontaneous
  Country: US (occurrence: US)
  Receive Date: 20211029
  Receipt Date: 20211029
  Transmission Date: 20220303
  Serious: No
  Sender: FDA-Public Use
  Company Number: US-MERCK HEALTHCARE KGAA-9275253

PATIENT

DRUGS (1)
  1. METFORMIN [Suspect]
     Active Substance: METFORMIN HYDROCHLORIDE
     Indication: Product used for unknown indication
     Dosage: METFORMIN 1000 (UNSPECIFIED UNIT) AND METFORMIN 500 (UNSPECIFIED UNIT) SINCE 1 YEAR AGO
     Dates: start: 2020

REACTIONS (1)
  - Diarrhoea [Unknown]
